FAERS Safety Report 4371883-9 (Version None)
Quarter: 2004Q2

REPORT INFORMATION
  Report Type: 
  Country: None (occurrence: None)
  Receive Date: 20040602
  Receipt Date: 20040602
  Transmission Date: 20050107
  Serious: No
  Sender: FDA-Public Use
  Company Number: None

PATIENT
  Sex: Male
  Weight: 127 kg

DRUGS (6)
  1. VALPROIC ACID [Suspect]
     Indication: AFFECTIVE DISORDER
     Dosage: 1500 MG BID ORAL
     Route: 048
  2. DIPHENHYDRAMINE HCL [Concomitant]
  3. RANITIDINE [Concomitant]
  4. TRILEPTAL [Concomitant]
  5. CLONAZEPAM [Concomitant]
  6. QUETIAPINE [Concomitant]

REACTIONS (1)
  - LIVER FUNCTION TEST ABNORMAL [None]
